FAERS Safety Report 4306435-X (Version None)
Quarter: 2004Q1

REPORT INFORMATION
  Report Type: 
  Country: None (occurrence: None)
  Receive Date: 20040225
  Receipt Date: 20030625
  Transmission Date: 20041129
  Serious: No
  Sender: FDA-Public Use
  Company Number: US-BRISTOL-MYERS SQUIBB COMPANY-12325452

PATIENT
  Age: 68 Year
  Sex: Male
  Weight: 91 kg

DRUGS (1)
  1. EXCEDRIN ES TABS [Suspect]
     Indication: PAIN
     Route: 048
     Dates: end: 20010101

REACTIONS (1)
  - GASTROOESOPHAGEAL REFLUX DISEASE [None]
